FAERS Safety Report 25804879 (Version 1)
Quarter: 2025Q3

REPORT INFORMATION
  Report Type: Report from Study
  Country: GB (occurrence: GB)
  Receive Date: 20250916
  Receipt Date: 20250916
  Transmission Date: 20251021
  Serious: Yes (Other)
  Sender: ABBVIE
  Company Number: GB-ABBVIE-6456193

PATIENT
  Age: 20 Year
  Sex: Female

DRUGS (1)
  1. SKYRIZI [Suspect]
     Active Substance: RISANKIZUMAB-RZAA
     Indication: Crohn^s disease
     Dosage: SKYRIZI 360MG/2.4ML?FOA: SOLUTION FOR INJECTION IN CARTRIDGE
     Route: 058
     Dates: end: 2025

REACTIONS (1)
  - Proctectomy [Unknown]

NARRATIVE: CASE EVENT DATE: 20250801
